FAERS Safety Report 4573323-3 (Version None)
Quarter: 2005Q1

REPORT INFORMATION
  Report Type: 
  Country: None (occurrence: None)
  Receive Date: 20050208
  Receipt Date: 20040706
  Transmission Date: 20050727
  Serious: No
  Sender: FDA-Public Use
  Company Number: US-GLAXOSMITHKLINE-A0520871A

PATIENT
  Sex: Female

DRUGS (2)
  1. PAXIL [Suspect]
     Indication: ANXIETY DISORDER
     Dosage: 20MG PER DAY
     Route: 048
     Dates: start: 20020220, end: 20021003
  2. LORAZEPAM [Concomitant]
     Indication: ANXIETY
     Route: 048

REACTIONS (9)
  - ANXIETY [None]
  - DRUG WITHDRAWAL SYNDROME [None]
  - FEELING ABNORMAL [None]
  - HEADACHE [None]
  - HYPOAESTHESIA ORAL [None]
  - MUSCLE TWITCHING [None]
  - PANIC ATTACK [None]
  - TINNITUS [None]
  - VERTIGO [None]
